FAERS Safety Report 8324697 (Version 3)
Quarter: 2012Q4

REPORT INFORMATION
  Report Type: 
  Country: DE (occurrence: DE)
  Receive Date: 20120106
  Receipt Date: 20121001
  Transmission Date: 20130627
  Serious: Yes (Death, Life-Threatening, Hospitalization, Other)
  Sender: FDA-Public Use
  Company Number: DE-RANBAXY-2011RR-51631

PATIENT
  Age: 78 Year
  Sex: Female
  Weight: 80 kg

DRUGS (5)
  1. IBUPROFEN [Suspect]
     Indication: PRODUCT USED FOR UNKNOWN INDICATION
     Dosage: 400 mg, qd
     Route: 048
     Dates: start: 201108, end: 20111030
  2. SPIROBETA [Suspect]
     Indication: CARDIAC FAILURE
     Dosage: 50 mg, qd
     Route: 048
     Dates: start: 2005, end: 20111030
  3. RAMILICH [Suspect]
     Indication: CARDIAC FAILURE
     Dosage: 10 mg, qd
     Route: 048
     Dates: start: 2005, end: 20111030
  4. FUROBETA [Concomitant]
     Indication: PRODUCT USED FOR UNKNOWN INDICATION
     Dosage: 40 mg/day
     Route: 048
     Dates: start: 2003
  5. INDOMETACIN [Concomitant]
     Indication: PRODUCT USED FOR UNKNOWN INDICATION
     Dosage: UNK
     Route: 048
     Dates: start: 2009

REACTIONS (2)
  - Renal failure acute [Recovered/Resolved]
  - Hyperkalaemia [Recovered/Resolved]
